FAERS Safety Report 8704791 (Version 3)
Quarter: 2012Q4

REPORT INFORMATION
  Report Type: 
  Country: US (occurrence: US)
  Receive Date: 20120803
  Receipt Date: 20121019
  Transmission Date: 20130627
  Serious: Yes (Life-Threatening, Congenital Anomaly)
  Sender: FDA-Public Use
  Company Number: US-ELI_LILLY_AND_COMPANY-US201207007520

PATIENT

DRUGS (8)
  1. CYMBALTA [Suspect]
     Indication: FIBROMYALGIA
     Dosage: 30 mg, qd
     Route: 064
     Dates: start: 20110820, end: 20120319
  2. CYMBALTA [Suspect]
     Indication: FIBROMYALGIA
     Dosage: 30 mg, qd
     Route: 064
     Dates: start: 20110820, end: 20120319
  3. PRENATAL VITAMINS                  /01549301/ [Concomitant]
     Dosage: UNK
     Route: 064
     Dates: start: 20120320
  4. PRENATAL VITAMINS                  /01549301/ [Concomitant]
     Dosage: UNK
     Route: 064
     Dates: start: 20120320
  5. METFORMIN [Concomitant]
     Indication: DIABETES MELLITUS
     Route: 064
  6. METFORMIN [Concomitant]
     Indication: DIABETES MELLITUS
     Route: 064
  7. NOVOLOG [Concomitant]
     Indication: DIABETES MELLITUS
     Route: 064
  8. NOVOLOG [Concomitant]
     Indication: DIABETES MELLITUS
     Route: 064

REACTIONS (3)
  - Congenital diaphragmatic hernia [Not Recovered/Not Resolved]
  - Heterotaxia [Not Recovered/Not Resolved]
  - Foetal exposure during pregnancy [Not Recovered/Not Resolved]
